FAERS Safety Report 10155197 (Version 3)
Quarter: 2014Q2

REPORT INFORMATION
  Report Type: Report from Study
  Country: MX (occurrence: MX)
  Receive Date: 20140506
  Receipt Date: 20140611
  Transmission Date: 20141212
  Serious: Yes (Other)
  Sender: FDA-Public Use
  Company Number: PHHY2014MX054352

PATIENT
  Age: 71 Year
  Sex: Male
  Weight: 85 kg

DRUGS (5)
  1. EXFORGE [Suspect]
     Indication: HYPERTENSION
     Dosage: 1 DF, (160/5 MG) DAILY, ONLY WHEN BLOOD PRESSURE INCREASED
     Route: 048
  2. OTHER HORMONE ANTAGONISTS AND RELATED AGENTS [Concomitant]
     Indication: PROSTATE CANCER
     Dosage: UNK UKN, EVERY 3 MONTHS
  3. ALEVIAN DUO                        /06593801/ [Concomitant]
     Indication: FLATULENCE
     Dosage: 1 DF, ONCE IN A WHILE
     Route: 048
  4. ESPAVEN ENZIMATICO [Concomitant]
     Indication: FLATULENCE
     Dosage: UNK UKN, 3 TIMES A DAY
  5. ESPAVEN ENZIMATICO [Concomitant]
     Dosage: 1 DF, DAILY

REACTIONS (10)
  - Blood pressure increased [Recovered/Resolved]
  - Hypophagia [Not Recovered/Not Resolved]
  - Cardiac disorder [Not Recovered/Not Resolved]
  - Dysstasia [Recovered/Resolved]
  - Body fat disorder [Not Recovered/Not Resolved]
  - Loss of control of legs [Recovering/Resolving]
  - Weight increased [Not Recovered/Not Resolved]
  - Blood pressure decreased [Recovered/Resolved]
  - Dizziness [Recovered/Resolved]
  - Hypoaesthesia [Recovering/Resolving]
